FAERS Safety Report 17423872 (Version 1)
Quarter: 2020Q1

REPORT INFORMATION
  Report Type: Spontaneous
  Country: GB (occurrence: GB)
  Receive Date: 20200217
  Receipt Date: 20200217
  Transmission Date: 20200409
  Serious: Yes (Other)
  Sender: FDA-Public Use
  Company Number: GB-TEVA-2020-GB-1186048

PATIENT
  Age: 40 Year
  Sex: Female
  Weight: 60 kg

DRUGS (2)
  1. NAPROXEN. [Suspect]
     Active Substance: NAPROXEN
     Indication: BACK INJURY
     Dosage: 1000MG
     Route: 048
     Dates: start: 20200118, end: 20200123
  2. LINACLOTIDE [Concomitant]
     Active Substance: LINACLOTIDE

REACTIONS (5)
  - Stomatitis [Unknown]
  - Oral candidiasis [Not Recovered/Not Resolved]
  - Oral pain [Unknown]
  - Mouth ulceration [Not Recovered/Not Resolved]
  - Tongue eruption [Not Recovered/Not Resolved]

NARRATIVE: CASE EVENT DATE: 20200119
